FAERS Safety Report 21006958 (Version 1)
Quarter: 2022Q3

REPORT INFORMATION
  Report Type: Report from Study
  Country: ZA (occurrence: ZA)
  Receive Date: 20220625
  Receipt Date: 20220625
  Transmission Date: 20221027
  Serious: Yes (Hospitalization)
  Sender: FDA-Public Use
  Company Number: ZA-NOVARTISPH-NVSC2022ZA141183

PATIENT
  Age: 52 Year
  Sex: Female

DRUGS (1)
  1. FINGOLIMOD HYDROCHLORIDE [Suspect]
     Active Substance: FINGOLIMOD HYDROCHLORIDE
     Indication: Relapsing-remitting multiple sclerosis
     Dosage: 0.5 MG, QD
     Route: 048
     Dates: start: 20160627

REACTIONS (5)
  - COVID-19 [Unknown]
  - Pain [Unknown]
  - Hypoaesthesia [Unknown]
  - Memory impairment [Unknown]
  - Gait disturbance [Unknown]

NARRATIVE: CASE EVENT DATE: 20210701
